FAERS Safety Report 9797170 (Version 8)
Quarter: 2016Q2

REPORT INFORMATION
  Report Type: Report from Study
  Country: IL (occurrence: IL)
  Receive Date: 20140106
  Receipt Date: 20160421
  Transmission Date: 20160815
  Serious: Yes (Other)
  Sender: FDA-Public Use
  Company Number: PHHY2013IL130164

PATIENT
  Age: 78 Year
  Sex: Male
  Weight: 85 kg

DRUGS (2)
  1. SANDOSTATIN LAR DEPOT [Suspect]
     Active Substance: OCTREOTIDE ACETATE
     Indication: CARCINOID TUMOUR
     Dosage: 40 MG, EVERY FOUR WEEK (Q4W)
     Route: 030
     Dates: start: 20130603
  2. SANDOSTATIN LAR DEPOT [Suspect]
     Active Substance: OCTREOTIDE ACETATE
     Dosage: 40 MG, QMO
     Route: 030

REACTIONS (22)
  - Flushing [Not Recovered/Not Resolved]
  - Fall [Unknown]
  - Loss of consciousness [Unknown]
  - Skin burning sensation [Unknown]
  - Abdominal pain [Recovering/Resolving]
  - Sensory loss [Recovered/Resolved]
  - Pruritus generalised [Unknown]
  - Rash [Not Recovered/Not Resolved]
  - Hypoglycaemia [Unknown]
  - Syncope [Recovered/Resolved]
  - Nausea [Recovered/Resolved]
  - Asthenia [Unknown]
  - Hyperhidrosis [Recovered/Resolved]
  - Pruritus [Recovered/Resolved]
  - Diarrhoea [Recovering/Resolving]
  - Heart rate decreased [Recovered/Resolved]
  - Rash generalised [Not Recovered/Not Resolved]
  - Hypotension [Unknown]
  - Erythema [Recovered/Resolved]
  - Anal incontinence [Recovered/Resolved]
  - Feeling abnormal [Not Recovered/Not Resolved]
  - Diarrhoea [Recovered/Resolved]

NARRATIVE: CASE EVENT DATE: 20131111
